FAERS Safety Report 17641758 (Version 1)
Quarter: 2020Q2

REPORT INFORMATION
  Report Type: Spontaneous
  Country: IT (occurrence: IT)
  Receive Date: 20200408
  Receipt Date: 20200408
  Transmission Date: 20200713
  Serious: Yes (Other)
  Sender: FDA-Public Use
  Company Number: IT-SUN PHARMACEUTICAL INDUSTRIES LTD-2020RR-243191

PATIENT
  Age: 78 Year
  Sex: Female

DRUGS (6)
  1. ZOLEDRONIC ACID [Suspect]
     Active Substance: ZOLEDRONIC ACID
     Indication: PROPHYLAXIS
     Dosage: UNK
     Route: 042
  2. CAPECITABINE. [Suspect]
     Active Substance: CAPECITABINE
     Indication: ADENOCARCINOMA GASTRIC
     Dosage: UNK
     Route: 065
  3. OXALIPLATIN. [Suspect]
     Active Substance: OXALIPLATIN
     Indication: ADENOCARCINOMA GASTRIC
     Dosage: 8 CYCLES, AS FIRST LINE CHEMOTHERAPY
     Route: 065
     Dates: start: 201504, end: 201509
  4. FLUOROURACIL. [Suspect]
     Active Substance: FLUOROURACIL
     Indication: ADENOCARCINOMA GASTRIC
     Dosage: 8 CYCLES, AS FIRST LINE CHEMOTHERAPY
     Route: 065
     Dates: start: 201504, end: 201509
  5. NIVOLUMAB [Suspect]
     Active Substance: NIVOLUMAB
     Indication: ADENOCARCINOMA GASTRIC
     Route: 065
  6. CALCIUM FOLINAT [Suspect]
     Active Substance: LEUCOVORIN CALCIUM
     Indication: ADENOCARCINOMA GASTRIC
     Dosage: 8 CYCLES, AS FIRST LINE CHEMOTHERAPY
     Route: 065
     Dates: start: 201504, end: 201509

REACTIONS (7)
  - Skin toxicity [Unknown]
  - Disease progression [Unknown]
  - Hydronephrosis [Unknown]
  - Gastrointestinal toxicity [Unknown]
  - Renal impairment [Unknown]
  - Therapeutic product effect incomplete [Unknown]
  - Lithiasis [Unknown]
